FAERS Safety Report 7149031-1 (Version None)
Quarter: 2010Q4

REPORT INFORMATION
  Report Type: 
  Country: None (occurrence: None)
  Receive Date: 20101124
  Receipt Date: 20101111
  Transmission Date: 20110411
  Serious: Yes (Other)
  Sender: FDA-Public Use
  Company Number: 2010P1002547

PATIENT
  Age: 72 Year
  Sex: Female
  Weight: 81.6475 kg

DRUGS (19)
  1. FENTANYL-25 [Suspect]
     Indication: PAIN
     Dosage: 25 MCG/HR; Q3H;TDER
     Route: 062
     Dates: start: 20050101
  2. SIMVASTATIN [Concomitant]
  3. AMBIEN CR [Concomitant]
  4. AMITRIPTYLINE [Concomitant]
  5. SPIRONOLACTONE [Concomitant]
  6. KLOR-CON [Concomitant]
  7. DIAZEPAM [Concomitant]
  8. PERCOCET [Concomitant]
  9. CARDIZEM [Concomitant]
  10. LEVOTHYROXINE [Concomitant]
  11. LASIX [Concomitant]
  12. ACETYLSALICYLIC ACID [Concomitant]
  13. OSTEO BI-PLEX [Concomitant]
  14. MULTI-VITAMIN [Concomitant]
  15. OMEGA FISH OIL [Concomitant]
  16. CALCIUM WITH VITAMIN D [Concomitant]
  17. VITAMIN A [Concomitant]
  18. VITAMIN D [Concomitant]
  19. LIDOCAINE [Concomitant]

REACTIONS (7)
  - BALANCE DISORDER [None]
  - BURNING SENSATION [None]
  - CEREBROVASCULAR ACCIDENT [None]
  - DIZZINESS [None]
  - FALL [None]
  - LACERATION [None]
  - PARAESTHESIA [None]
